FAERS Safety Report 17809215 (Version 1)
Quarter: 2020Q2

REPORT INFORMATION
  Report Type: Report from Study
  Country: EG (occurrence: EG)
  Receive Date: 20200520
  Receipt Date: 20200520
  Transmission Date: 20200714
  Serious: Yes (Death)
  Sender: FDA-Public Use
  Company Number: EG-MYLANLABS-2020M1050370

PATIENT

DRUGS (5)
  1. CYCLOPHOSPHAMIDE. [Suspect]
     Active Substance: CYCLOPHOSPHAMIDE
     Indication: NEPHROBLASTOMA
     Dosage: REGIMEN M
     Route: 042
  2. ETOPOSIDE. [Suspect]
     Active Substance: ETOPOSIDE
     Indication: NEPHROBLASTOMA
     Dosage: REGIMEN M
     Route: 042
  3. VINCRISTINE [Suspect]
     Active Substance: VINCRISTINE
     Indication: NEPHROBLASTOMA
     Dosage: INITIALLY STARTED ON REGIMEN DD-4A AND THEREAFTER ON REGIMEN M
     Route: 042
  4. DOXORUBICIN [Suspect]
     Active Substance: DOXORUBICIN
     Indication: NEPHROBLASTOMA
     Dosage: INITIALLY STARTED ON REGIMEN DD-4A AND THEREAFTER ON REGIMEN M
     Route: 042
  5. DACTINOMYCIN [Suspect]
     Active Substance: DACTINOMYCIN
     Indication: NEPHROBLASTOMA
     Dosage: INITIALLY STARTED ON REGIMEN DD-4A AND THEREAFTER ON REGIMEN M
     Route: 042

REACTIONS (2)
  - Sepsis [Fatal]
  - Febrile neutropenia [Fatal]
